FAERS Safety Report 5474734-4 (Version None)
Quarter: 2007Q3

REPORT INFORMATION
  Report Type: 
  Country: None (occurrence: None)
  Receive Date: 20070928
  Receipt Date: 20070913
  Transmission Date: 20080115
  Serious: Yes (Hospitalization)
  Sender: FDA-Public Use
  Company Number: 2007001754

PATIENT
  Age: 57 Year
  Sex: Male

DRUGS (1)
  1. TARCEVA [Suspect]
     Indication: NON-SMALL CELL LUNG CANCER
     Dosage: QD, ORAL
     Route: 048
     Dates: start: 20040402, end: 20070610

REACTIONS (4)
  - DIARRHOEA [None]
  - HYPERKALAEMIA [None]
  - NAUSEA [None]
  - VOMITING [None]
